FAERS Safety Report 5938622-9 (Version None)
Quarter: 2008Q4

REPORT INFORMATION
  Report Type: 
  Country: None (occurrence: None)
  Receive Date: 20081103
  Receipt Date: 20081020
  Transmission Date: 20090506
  Serious: Yes (Hospitalization)
  Sender: FDA-Public Use
  Company Number: US-ROCHE-592440

PATIENT
  Sex: Female
  Weight: 65 kg

DRUGS (56)
  1. MYCOPHENOLATE MOFETIL [Suspect]
     Route: 048
     Dates: start: 20081013
  2. MYCOPHENOLATE MOFETIL [Suspect]
     Route: 048
     Dates: start: 20080214, end: 20080917
  3. MYCOPHENOLATE MOFETIL [Suspect]
     Route: 048
     Dates: start: 20080210, end: 20080214
  4. MYCOPHENOLATE MOFETIL [Suspect]
     Route: 048
     Dates: start: 20080125, end: 20080210
  5. MYCOPHENOLATE MOFETIL [Suspect]
     Route: 048
     Dates: start: 20071220, end: 20080125
  6. MYCOPHENOLATE MOFETIL [Suspect]
     Route: 048
     Dates: start: 20070410, end: 20071219
  7. PROGRAF [Concomitant]
     Route: 048
     Dates: start: 20080923
  8. PROGRAF [Concomitant]
     Route: 048
     Dates: start: 20080125, end: 20080918
  9. PROGRAF [Concomitant]
     Route: 048
     Dates: start: 20070410, end: 20080125
  10. PREPARATION H [Concomitant]
     Route: 054
     Dates: start: 20080918
  11. HYDROCORTISONE SUPPOSITORY [Concomitant]
     Dosage: AS NEEDED.
     Route: 054
     Dates: start: 20080919
  12. LEVAQUIN [Concomitant]
     Route: 048
     Dates: start: 20080922, end: 20080924
  13. METOPROLOL TARTRATE [Concomitant]
     Route: 048
     Dates: start: 20080919, end: 20080924
  14. METOPROLOL TARTRATE [Concomitant]
     Dosage: 50 MG GIVEN AM; 25 MG GIVEN PM.
     Route: 048
     Dates: start: 20080925, end: 20080925
  15. METOPROLOL TARTRATE [Concomitant]
     Route: 048
     Dates: start: 20080926
  16. FLAGYL [Concomitant]
     Route: 048
     Dates: start: 20080918, end: 20080922
  17. NIFEDIPINE [Concomitant]
     Route: 048
     Dates: start: 20080919
  18. OXYCODONE HCL [Concomitant]
     Dosage: AS NEEDED.
     Route: 048
     Dates: start: 20080919, end: 20080924
  19. OXYCODONE HCL [Concomitant]
     Dosage: AS NEEDED.
     Route: 048
     Dates: start: 20080924, end: 20081002
  20. OXYCODONE HCL [Concomitant]
     Dosage: AS NEEDED.
     Route: 048
     Dates: start: 20081002
  21. PREMARIN [Concomitant]
     Route: 048
     Dates: start: 20050101, end: 20080917
  22. NEURONTIN [Concomitant]
     Route: 048
     Dates: start: 20030101
  23. ATENOLOL [Concomitant]
     Route: 048
     Dates: start: 20040401, end: 20080918
  24. PREVACID [Concomitant]
     Route: 048
     Dates: start: 20040401, end: 20080917
  25. LORTAB [Concomitant]
     Route: 048
     Dates: start: 20060401, end: 20080917
  26. WELLBUTRIN [Concomitant]
     Route: 048
     Dates: start: 20070401, end: 20080311
  27. WELLBUTRIN [Concomitant]
     Route: 048
     Dates: start: 20080312, end: 20080917
  28. ZOLOFT [Concomitant]
     Route: 048
     Dates: start: 20071225, end: 20080315
  29. PROCARDIA [Concomitant]
     Route: 048
     Dates: start: 20070701
  30. LOPERAMIDE HCL [Concomitant]
     Route: 048
     Dates: start: 20080210, end: 20080210
  31. PHENERGAN HCL [Concomitant]
     Dosage: ROUTE: ORAL.
     Route: 050
     Dates: start: 20080210, end: 20080210
  32. PHENERGAN HCL [Concomitant]
     Dosage: ROUTE: INTRAVENOUS.
     Route: 050
     Dates: start: 20080920
  33. PHENERGAN HCL [Concomitant]
     Dosage: ROUTE: ORAL.
     Route: 050
     Dates: start: 20081001
  34. ZOSYN [Concomitant]
     Route: 042
     Dates: start: 20080922, end: 20080924
  35. BENADRYL [Concomitant]
     Route: 042
     Dates: start: 20080919, end: 20080919
  36. MORPHINE [Concomitant]
     Route: 042
     Dates: start: 20080925, end: 20080925
  37. MORPHINE [Concomitant]
     Route: 042
     Dates: start: 20081008, end: 20081008
  38. POTASSIUM CHLORIDE [Concomitant]
     Route: 048
     Dates: start: 20080924, end: 20080924
  39. AMOXICILLIN [Concomitant]
     Route: 048
     Dates: start: 20080925, end: 20080929
  40. DOCUSATE [Concomitant]
     Route: 048
     Dates: start: 20081004
  41. FLONASE [Concomitant]
     Dosage: UNTIS: 2 SPRAYS (EACH NOSTRIL OR NASAL).
     Route: 055
     Dates: start: 20080924
  42. GANCICLOVIR [Concomitant]
     Dosage: ADMINISTERED INTRAVENOUS.
     Route: 050
     Dates: start: 20080918, end: 20080920
  43. GANCICLOVIR [Concomitant]
     Dosage: ADMINISTERED INTRAVENOUS.
     Route: 050
     Dates: start: 20080923, end: 20081014
  44. GANCICLOVIR [Concomitant]
     Dosage: ADMINISTERED ORAL.
     Route: 050
     Dates: start: 20081014, end: 20081018
  45. ASPIRIN [Concomitant]
     Route: 048
     Dates: start: 20081017
  46. PROTONIX [Concomitant]
     Route: 048
     Dates: start: 20080918
  47. NACL NASAL SPRAY [Concomitant]
     Dosage: NACL NOSE DROPS. ROUTE: NASALLY.
     Dates: start: 20080924
  48. VANCOMYCIN HYDROCHLORIDE [Concomitant]
     Route: 042
     Dates: start: 20080921, end: 20080923
  49. ACETAMINOPHEN [Concomitant]
     Dosage: AS NEEDED.
     Route: 048
     Dates: start: 20080920, end: 20080920
  50. ACETAMINOPHEN [Concomitant]
     Route: 048
     Dates: start: 20080920, end: 20080922
  51. DESITIN [Concomitant]
     Dosage: DOSE: APPLICATION.
     Route: 061
     Dates: start: 20080918, end: 20080918
  52. NOVOLOG [Concomitant]
     Dosage: DOSE: SS.
     Route: 058
     Dates: start: 20080919
  53. ATIVAN [Concomitant]
     Dosage: AS NEEDED.
     Route: 048
     Dates: start: 20080919
  54. ZOFRAN [Concomitant]
     Route: 042
     Dates: start: 20080920
  55. RESTORIL [Concomitant]
     Dosage: GIVEN AT NIGHT.
     Route: 048
     Dates: start: 20081002
  56. LASIX [Concomitant]
     Route: 042
     Dates: start: 20081007, end: 20081007

REACTIONS (3)
  - BLOOD PRESSURE INCREASED [None]
  - CEREBROVASCULAR ACCIDENT [None]
  - CYTOMEGALOVIRUS COLITIS [None]
